FAERS Safety Report 7418375 (Version 20)
Quarter: 2015Q3

REPORT INFORMATION
  Report Type: Report from Study
  Country: MX (occurrence: MX)
  Receive Date: 20100614
  Receipt Date: 20150818
  Transmission Date: 20151125
  Serious: Yes (Death, Life-Threatening, Hospitalization, Disabling)
  Sender: FDA-Public Use
  Company Number: PHHO2010MX08193

PATIENT

DRUGS (3)
  1. COMPARATOR TRASTUZUMAB [Suspect]
     Active Substance: TRASTUZUMAB
     Indication: BREAST CANCER METASTATIC
     Dosage: 120 MG, QD
     Route: 042
     Dates: start: 20100519, end: 20100526
  2. COMPARATOR PACLITAXEL [Suspect]
     Active Substance: PACLITAXEL
     Indication: BREAST CANCER METASTATIC
     Dosage: 192 MG, QD
     Route: 042
     Dates: start: 20100519, end: 20100526
  3. AFINITOR [Suspect]
     Active Substance: EVEROLIMUS
     Indication: BREAST CANCER METASTATIC
     Dosage: UNK
     Route: 048
     Dates: start: 20100519, end: 20100528

REACTIONS (8)
  - Acute respiratory failure [Fatal]
  - Hemiplegia [Not Recovered/Not Resolved]
  - Cerebrovascular accident [Not Recovered/Not Resolved]
  - Thrombocytopenia [Unknown]
  - Epistaxis [Recovered/Resolved]
  - Cerebral ischaemia [Not Recovered/Not Resolved]
  - Hypovolaemic shock [Unknown]
  - Hypovolaemia [Not Recovered/Not Resolved]

NARRATIVE: CASE EVENT DATE: 20100519
